FAERS Safety Report 10048652 (Version 1)
Quarter: 2014Q1

REPORT INFORMATION
  Report Type: Spontaneous
  Country: US (occurrence: US)
  Receive Date: 20140331
  Receipt Date: 20140331
  Transmission Date: 20141002
  Serious: No
  Sender: FDA-Public Use
  Company Number: US-PFIZER INC-2014090233

PATIENT
  Sex: Male

DRUGS (2)
  1. LYRICA [Suspect]
     Dosage: UNK, 2X/DAY
  2. LYRICA [Suspect]
     Dosage: UNK,1X/DAY

REACTIONS (1)
  - Local swelling [Unknown]
